FAERS Safety Report 5910639-X (Version None)
Quarter: 2008Q4

REPORT INFORMATION
  Report Type: 
  Country: None (occurrence: None)
  Receive Date: 20081007
  Receipt Date: 20080926
  Transmission Date: 20090506
  Serious: Yes (Life-Threatening)
  Sender: FDA-Public Use
  Company Number: CN-AVENTIS-200813564GDDC

PATIENT
  Age: 43 Year
  Sex: Female
  Weight: 65 kg

DRUGS (11)
  1. TAXOTERE [Suspect]
     Route: 042
     Dates: start: 20080407, end: 20080407
  2. PHARMORUBICIN [Suspect]
     Route: 042
     Dates: start: 20080407, end: 20080408
  3. METRONIDAZOLE [Concomitant]
  4. LEUCOGEN [Concomitant]
  5. BATILOL [Concomitant]
  6. DEXAMETHASONE [Concomitant]
  7. ONDANSETRON [Concomitant]
  8. VIT B6 [Concomitant]
  9. CIMETIDINE [Concomitant]
  10. PROMETHAZINE [Concomitant]
  11. OMEPRAZOLE [Concomitant]

REACTIONS (8)
  - COMA HEPATIC [None]
  - HEPATIC FAILURE [None]
  - HEPATIC FUNCTION ABNORMAL [None]
  - HEPATIC NECROSIS [None]
  - HYPERBILIRUBINAEMIA [None]
  - HYPOTENSION [None]
  - NEUTROPENIA [None]
  - PYREXIA [None]
